FAERS Safety Report 8379239-9 (Version None)
Quarter: 2012Q2

REPORT INFORMATION
  Report Type: 
  Country: None (occurrence: None)
  Receive Date: 20120523
  Receipt Date: 20120516
  Transmission Date: 20120825
  Serious: Yes (Other)
  Sender: FDA-Public Use
  Company Number: US-BAYER-2012-048537

PATIENT
  Sex: Female

DRUGS (1)
  1. MIRENA [Suspect]
     Indication: CONTRACEPTION
     Dosage: DAILY DOSE 20 ?G
     Route: 015
     Dates: start: 20080701, end: 20120101

REACTIONS (5)
  - VAGINAL HAEMORRHAGE [None]
  - UTERINE HAEMORRHAGE [None]
  - OVARIAN CYST [None]
  - AMENORRHOEA [None]
  - ABDOMINAL PAIN LOWER [None]
